FAERS Safety Report 6056885-9 (Version None)
Quarter: 2009Q1

REPORT INFORMATION
  Report Type: 
  Country: None (occurrence: None)
  Receive Date: 20090129
  Receipt Date: 20090119
  Transmission Date: 20090719
  Serious: Yes (Hospitalization)
  Sender: FDA-Public Use
  Company Number: B0554782A

PATIENT
  Age: 77 Year
  Sex: Female

DRUGS (4)
  1. SEREVENT [Suspect]
     Indication: ASTHMA
     Dosage: 2PUFF PER DAY
     Route: 055
  2. PREVISCAN [Suspect]
     Indication: PHLEBITIS
     Route: 048
     Dates: start: 20081030, end: 20081110
  3. NEXIUM [Suspect]
     Dosage: 1TAB PER DAY
     Route: 048
     Dates: start: 20081029
  4. HEPARIN SODIUM [Suspect]
     Indication: PHLEBITIS
     Dosage: 1800IU PER DAY
     Route: 042
     Dates: start: 20081029, end: 20081102

REACTIONS (1)
  - VASCULAR PURPURA [None]
